FAERS Safety Report 6357827-9 (Version None)
Quarter: 2009Q3

REPORT INFORMATION
  Report Type: 
  Country: None (occurrence: None)
  Receive Date: 20090916
  Receipt Date: 20090209
  Transmission Date: 20100115
  Serious: Yes (Other)
  Sender: FDA-Public Use
  Company Number: PHEH2009US10601

PATIENT
  Sex: Female

DRUGS (3)
  1. GENTEAL MODERATE LUBRICANT EYE DROPS (NVO) [Suspect]
     Dosage: ALL DAY
  2. GENTEAL PM LUBRICANT EYE OINTMENT [Suspect]
     Dosage: EVERY NIGHT
  3. GENTEAL GEL (NVO) [Suspect]
     Dosage: OFF AND ON

REACTIONS (1)
  - EYE OPERATION [None]
